FAERS Safety Report 24669515 (Version 1)
Quarter: 2024Q4

REPORT INFORMATION
  Report Type: Spontaneous
  Country: US (occurrence: US)
  Receive Date: 20241127
  Receipt Date: 20241127
  Transmission Date: 20250115
  Serious: No
  Sender: LABORATOIRES SERB
  Company Number: US-SERB S.A.S.-2166075

PATIENT

DRUGS (1)
  1. CROFAB [Suspect]
     Active Substance: AGKISTRODON PISCIVORUS IMMUNE FAB ANTIVENIN (OVINE)\CROTALUS ADAMANTEUS IMMUNE FAB ANTIVENIN (OVINE)
     Indication: Snake bite
     Dates: start: 20240916

REACTIONS (2)
  - Incorrect drug administration rate [Unknown]
  - Incorrect product administration duration [Unknown]
